FAERS Safety Report 8573824-7 (Version None)
Quarter: 2012Q3

REPORT INFORMATION
  Report Type: 
  Country: None (occurrence: None)
  Receive Date: 20120806
  Receipt Date: 20110818
  Transmission Date: 20120928
  Serious: No
  Sender: FDA-Public Use
  Company Number: US-GLAXOSMITHKLINE-A0941542A

PATIENT
  Age: 90 Year
  Sex: Female

DRUGS (8)
  1. SINGULAIR [Concomitant]
  2. NEXIUM [Concomitant]
  3. GABAPENTIN [Concomitant]
  4. FLUTICASONE PROPIONATE [Suspect]
     Indication: ASTHMA
     Route: 055
  5. CRESTOR [Concomitant]
  6. UNKNOWN MEDICATION [Concomitant]
  7. XANAX [Concomitant]
  8. PERCOCET [Concomitant]

REACTIONS (2)
  - WHEEZING [None]
  - COUGH [None]
